FAERS Safety Report 11671492 (Version 2)
Quarter: 2015Q4

REPORT INFORMATION
  Report Type: Spontaneous
  Country: FR (occurrence: FR)
  Receive Date: 20151028
  Receipt Date: 20151030
  Transmission Date: 20160304
  Serious: Yes (Hospitalization)
  Sender: FDA-Public Use
  Company Number: FR-SA-2015SA163780

PATIENT
  Age: 37 Year
  Sex: Female

DRUGS (1)
  1. AUBAGIO [Suspect]
     Active Substance: TERIFLUNOMIDE
     Route: 048
     Dates: start: 201409, end: 201509

REACTIONS (2)
  - Anaemia [Recovered/Resolved]
  - Menometrorrhagia [Recovered/Resolved]

NARRATIVE: CASE EVENT DATE: 201509
